FAERS Safety Report 6477940-5 (Version None)
Quarter: 2009Q4

REPORT INFORMATION
  Report Type: 
  Country: None (occurrence: None)
  Receive Date: 20091207
  Receipt Date: 20091105
  Transmission Date: 20100525
  Serious: Yes (Other)
  Sender: FDA-Public Use
  Company Number: A0833230A

PATIENT
  Age: 2 Year
  Sex: Female
  Weight: 14 kg

DRUGS (1)
  1. ZANAMIVIR [Suspect]
     Dosage: 28MG TWICE PER DAY
     Route: 042
     Dates: start: 20091015, end: 20091022

REACTIONS (1)
  - HYPOTENSION [None]
